FAERS Safety Report 21923988 (Version 2)
Quarter: 2023Q1

REPORT INFORMATION
  Report Type: Other
  Country: KP (occurrence: KP)
  Receive Date: 20230130
  Receipt Date: 20230206
  Transmission Date: 20230417
  Serious: Yes (Life-Threatening, Hospitalization)
  Sender: FDA-Public Use
  Company Number: KP-ALVOGEN-2023089039

PATIENT
  Age: 76 Year
  Sex: Female

DRUGS (2)
  1. FLECAINIDE [Suspect]
     Active Substance: FLECAINIDE
     Indication: Atrial fibrillation
     Dosage: STRENGTH: 50 MG?IN ANOTHER HOSPITAL 1 DAY BEFORE THE PRESENTATION.
  2. APIXABAN [Concomitant]
     Active Substance: APIXABAN
     Indication: Atrial fibrillation
     Dosage: IN ANOTHER HOSPITAL 1 DAY BEFORE THE PRESENTATION.

REACTIONS (5)
  - Cardiotoxicity [Unknown]
  - Sinus arrest [Recovered/Resolved]
  - Bradycardia [Recovered/Resolved]
  - Pulmonary thrombosis [Unknown]
  - Pulmonary embolism [Unknown]
